FAERS Safety Report 5545312-3 (Version None)
Quarter: 2007Q4

REPORT INFORMATION
  Report Type: 
  Country: None (occurrence: None)
  Receive Date: 20071205
  Receipt Date: 20071205
  Transmission Date: 20080405
  Serious: Yes (Disabling)
  Sender: FDA-Public Use
  Company Number: None

PATIENT
  Age: 68 Year
  Sex: Female
  Weight: 106 kg

DRUGS (15)
  1. INTEGRILIN [Suspect]
     Indication: THROMBOSIS PROPHYLAXIS
     Dosage: 2MCG/KG/MINUTE ONCE TIME IV DRIP
     Route: 041
     Dates: start: 20070804, end: 20070805
  2. ASPIRIN [Concomitant]
  3. CLOPIDOGREL [Concomitant]
  4. HEPARIN [Concomitant]
  5. PREDNISONE [Concomitant]
  6. METHOTREXATE [Concomitant]
  7. FOLIC ACID [Concomitant]
  8. REMICADE [Concomitant]
  9. METOPROLOL [Concomitant]
  10. ATACAND HCT [Concomitant]
  11. POTASSIUM CHLORIDE [Concomitant]
  12. IBUPROFEN [Concomitant]
  13. DARVOCET [Concomitant]
  14. TEMAZEPAM [Concomitant]
  15. ZYRTEC [Concomitant]

REACTIONS (3)
  - ECCHYMOSIS [None]
  - HAEMATOMA [None]
  - THROMBOCYTOPENIA [None]
